FAERS Safety Report 10179000 (Version 1)
Quarter: 2014Q2

REPORT INFORMATION
  Report Type: Spontaneous
  Country: US (occurrence: US)
  Receive Date: 20140519
  Receipt Date: 20140519
  Transmission Date: 20141212
  Serious: No
  Sender: FDA-Public Use
  Company Number: US-BIOGENIDEC-2014BI041503

PATIENT
  Age: 59 Year
  Sex: Female

DRUGS (8)
  1. TECFIDERA [Suspect]
     Indication: MULTIPLE SCLEROSIS
     Route: 048
     Dates: start: 20130410, end: 20130416
  2. TECFIDERA [Suspect]
     Indication: MULTIPLE SCLEROSIS
     Route: 048
     Dates: start: 20130417
  3. ESTROGEN [Concomitant]
  4. PROGESTERONE [Concomitant]
  5. CALCIUM [Concomitant]
  6. VITAMIN D [Concomitant]
  7. ZANTAC [Concomitant]
  8. LEVOTHRYROSINE [Concomitant]

REACTIONS (5)
  - Back pain [Recovered/Resolved]
  - Paraesthesia [Recovered/Resolved]
  - Muscle tightness [Recovered/Resolved]
  - Dyskinesia [Recovered/Resolved]
  - Musculoskeletal chest pain [Not Recovered/Not Resolved]
